FAERS Safety Report 25590265 (Version 2)
Quarter: 2025Q4

REPORT INFORMATION
  Report Type: Spontaneous
  Country: EU (occurrence: EU)
  Receive Date: 20250722
  Receipt Date: 20251006
  Transmission Date: 20260117
  Serious: Yes (Hospitalization, Other)
  Sender: AUROBINDO
  Company Number: EU-KERNPHARMA-202501973

PATIENT
  Age: 17 Year
  Sex: Female

DRUGS (11)
  1. SERTRALINE [Suspect]
     Active Substance: SERTRALINE HYDROCHLORIDE
     Indication: Mixed anxiety and depressive disorder
     Dosage: 200 MILLIGRAM, ONCE A DAY
     Route: 065
     Dates: start: 202007
  2. OLANZAPINE [Suspect]
     Active Substance: OLANZAPINE
     Indication: Mixed anxiety and depressive disorder
     Dosage: 7.5 MILLIGRAM, ONCE A DAY
     Route: 065
     Dates: start: 202011
  3. FLUOXETINE [Suspect]
     Active Substance: FLUOXETINE HYDROCHLORIDE
     Indication: Mixed anxiety and depressive disorder
     Dosage: 60 MILLIGRAM, ONCE A DAY
     Route: 065
  4. QUETIAPINE [Suspect]
     Active Substance: QUETIAPINE
     Indication: Mixed anxiety and depressive disorder
     Dosage: 25 MILLIGRAM, ONCE A DAY
     Route: 065
  5. VENLAFAXINE [Suspect]
     Active Substance: VENLAFAXINE HYDROCHLORIDE
     Indication: Mixed anxiety and depressive disorder
     Dosage: 300 MILLIGRAM, ONCE A DAY
     Route: 065
     Dates: start: 2022
  6. VENLAFAXINE [Suspect]
     Active Substance: VENLAFAXINE HYDROCHLORIDE
     Dosage: 225 MILLIGRAM, ONCE A DAY
     Route: 065
     Dates: start: 2022
  7. ARIPIPRAZOLE [Suspect]
     Active Substance: ARIPIPRAZOLE
     Indication: Mixed anxiety and depressive disorder
     Dosage: 5 MILLIGRAM, ONCE A DAY
     Route: 065
     Dates: start: 2022
  8. ARIPIPRAZOLE [Suspect]
     Active Substance: ARIPIPRAZOLE
     Dosage: 10 MILLIGRAM, ONCE A DAY
     Route: 065
     Dates: start: 2022
  9. RISPERIDONE [Suspect]
     Active Substance: RISPERIDONE
     Indication: Mixed anxiety and depressive disorder
     Dosage: 1 MILLIGRAM, ONCE A DAY
     Route: 065
     Dates: start: 2022
  10. LITHIUM [Suspect]
     Active Substance: LITHIUM
     Indication: Mixed anxiety and depressive disorder
     Dosage: 800 MILLIGRAM, ONCE A DAY
     Route: 065
     Dates: start: 2022
  11. LITHIUM [Suspect]
     Active Substance: LITHIUM
     Dosage: 600 MILLIGRAM, ONCE A DAY
     Route: 065

REACTIONS (6)
  - Sinus tachycardia [Unknown]
  - Drug ineffective [Unknown]
  - Self-destructive behaviour [Recovered/Resolved]
  - Suicidal ideation [Recovered/Resolved]
  - Postural orthostatic tachycardia syndrome [Recovered/Resolved]
  - Affective disorder [Recovering/Resolving]

NARRATIVE: CASE EVENT DATE: 20200701
